FAERS Safety Report 8826803 (Version 1)
Quarter: 2012Q4

REPORT INFORMATION
  Report Type: 
  Country: CO (occurrence: CO)
  Receive Date: 20121005
  Receipt Date: 20121005
  Transmission Date: 20130627
  Serious: Yes (Other)
  Sender: FDA-Public Use
  Company Number: CO-PFIZER INC-2012243919

PATIENT
  Age: 9 Year
  Sex: Female

DRUGS (4)
  1. GENOTROPIN [Suspect]
     Indication: TURNER^S SYNDROME
     Dosage: 1.0 mg, 1x/day
     Route: 058
     Dates: start: 2009
  2. LEVOTHYROXINE [Concomitant]
     Indication: HYPOTHYROIDISM
     Dosage: 50 mg, 1x/day
     Route: 048
     Dates: start: 2011
  3. PENICILLINE [Concomitant]
     Indication: OEDEMA PERIPHERAL
     Dosage: 600 IU, every 15 days
  4. PENICILLINE [Concomitant]
     Indication: OEDEMA PERIPHERAL

REACTIONS (1)
  - Asthma [Unknown]
